FAERS Safety Report 16121644 (Version 1)
Quarter: 2019Q1

REPORT INFORMATION
  Report Type: Spontaneous
  Country: US (occurrence: US)
  Receive Date: 20190327
  Receipt Date: 20190327
  Transmission Date: 20190418
  Serious: Yes (Hospitalization)
  Sender: FDA-Public Use
  Company Number: US-UNITED THERAPEUTICS-UNT-2019-004805

PATIENT
  Age: 35 Year
  Sex: Female

DRUGS (2)
  1. REMODULIN [Suspect]
     Active Substance: TREPROSTINIL
     Indication: HEART DISEASE CONGENITAL
  2. REMODULIN [Suspect]
     Active Substance: TREPROSTINIL
     Indication: PULMONARY ARTERIAL HYPERTENSION
     Dosage: 0.094 ?G/KG, CONTINUING
     Route: 058
     Dates: start: 20141003

REACTIONS (5)
  - Diarrhoea [Unknown]
  - Abdominal wall abscess [Recovered/Resolved]
  - Claudication of jaw muscles [Unknown]
  - Flushing [Recovered/Resolved]
  - Hypotension [Unknown]

NARRATIVE: CASE EVENT DATE: 20190313
